FAERS Safety Report 4620534-4 (Version None)
Quarter: 2005Q1

REPORT INFORMATION
  Report Type: 
  Country: None (occurrence: None)
  Receive Date: 20050328
  Receipt Date: 20050318
  Transmission Date: 20050727
  Serious: Yes (Other)
  Sender: FDA-Public Use
  Company Number: US-GLAXOSMITHKLINE-A0550725A

PATIENT
  Age: 32 Year
  Sex: Female

DRUGS (3)
  1. COMBIVIR [Suspect]
     Indication: HIV INFECTION
     Dosage: 1TAB TWICE PER DAY
     Route: 048
     Dates: start: 20040922
  2. RETROVIR [Suspect]
     Indication: HIV INFECTION
     Route: 042
  3. VIRACEPT [Concomitant]
     Indication: HIV INFECTION
     Dosage: 250MG TEN TIMES PER DAY
     Dates: start: 20040922

REACTIONS (5)
  - CAESAREAN SECTION [None]
  - DRUG EXPOSURE DURING PREGNANCY [None]
  - HAEMORRHAGE [None]
  - PREMATURE LABOUR [None]
  - SMALL FOR DATES BABY [None]
